FAERS Safety Report 6889997-8 (Version None)
Quarter: 2010Q3

REPORT INFORMATION
  Report Type: 
  Country: None (occurrence: None)
  Receive Date: 20100730
  Receipt Date: 20080625
  Transmission Date: 20110219
  Serious: No
  Sender: FDA-Public Use
  Company Number: US-PFIZER INC-2008054045

PATIENT
  Sex: Male
  Weight: 90.909 kg

DRUGS (8)
  1. LIPITOR [Suspect]
     Indication: BLOOD CHOLESTEROL INCREASED
  2. LISINOPRIL [Concomitant]
  3. METOPROLOL TARTRATE [Concomitant]
  4. INSULIN [Concomitant]
  5. ACETYLSALICYLIC ACID SRT [Concomitant]
  6. PLAVIX [Concomitant]
  7. MULTI-VITAMINS [Concomitant]
  8. FISH OIL [Concomitant]

REACTIONS (3)
  - MALAISE [None]
  - MYALGIA [None]
  - POOR QUALITY SLEEP [None]
